FAERS Safety Report 9657715 (Version 1)
Quarter: 2013Q4

REPORT INFORMATION
  Report Type: Spontaneous
  Country: JP (occurrence: JP)
  Receive Date: 20131030
  Receipt Date: 20131030
  Transmission Date: 20140711
  Serious: Yes (Hospitalization, Other)
  Sender: FDA-Public Use
  Company Number: JP-PFIZER INC-2013303964

PATIENT
  Age: 71 Year
  Sex: Male

DRUGS (5)
  1. JZOLOFT [Suspect]
  2. RISPERIDONE [Suspect]
     Indication: IRRITABILITY
     Dosage: 3 MG, UNK
  3. AMOXAPINE [Suspect]
     Indication: IRRITABILITY
  4. CHLORPROMAZINE [Concomitant]
     Indication: IRRITABILITY
  5. MIRTAZAPINE [Concomitant]
     Indication: IRRITABILITY

REACTIONS (10)
  - Ileus [Recovering/Resolving]
  - Dysphagia [Recovering/Resolving]
  - Pneumonia aspiration [Unknown]
  - Delirium [Recovered/Resolved]
  - Parkinsonism [Unknown]
  - Cognitive disorder [Recovering/Resolving]
  - Irritability [Recovering/Resolving]
  - Anxiety [Unknown]
  - Depression [Recovering/Resolving]
  - Abulia [Unknown]
